FAERS Safety Report 9166211 (Version 1)
Quarter: 2013Q1

REPORT INFORMATION
  Report Type: Spontaneous
  Country: GB (occurrence: GB)
  Receive Date: 20130315
  Receipt Date: 20130315
  Transmission Date: 20140127
  Serious: Yes (Disabling)
  Sender: FDA-Public Use
  Company Number: GB-TEVA-390949ISR

PATIENT
  Age: 79 Year
  Sex: Male
  Weight: 60.77 kg

DRUGS (2)
  1. TAMSULOSIN [Suspect]
     Indication: PROSTATOMEGALY
     Dosage: 1 DOSAGE FORMS DAILY;
     Route: 048
     Dates: start: 20080201
  2. BLOOD PRESSURE MEDICATIONS [Concomitant]

REACTIONS (3)
  - Amnesia [Not Recovered/Not Resolved]
  - Mood swings [Not Recovered/Not Resolved]
  - Personality change [Not Recovered/Not Resolved]
